FAERS Safety Report 19074341 (Version 1)
Quarter: 2021Q1

REPORT INFORMATION
  Report Type: Spontaneous
  Country: CA (occurrence: CA)
  Receive Date: 20210330
  Receipt Date: 20210330
  Transmission Date: 20210420
  Serious: Yes (Other)
  Sender: FDA-Public Use
  Company Number: CA-BIOMARINAP-CA-2021-135688

PATIENT
  Age: 2 Year
  Sex: Female
  Weight: 11.26 kg

DRUGS (1)
  1. KUVAN [Suspect]
     Active Substance: SAPROPTERIN DIHYDROCHLORIDE
     Indication: PHENYLKETONURIA
     Dosage: 220 MILLIGRAM, QD
     Route: 048
     Dates: start: 20201219

REACTIONS (3)
  - Nasopharyngitis [Not Recovered/Not Resolved]
  - Amino acid level abnormal [Not Recovered/Not Resolved]
  - Eye operation [Unknown]
